FAERS Safety Report 7371100-1 (Version None)
Quarter: 2011Q1

REPORT INFORMATION
  Report Type: 
  Country: None (occurrence: None)
  Receive Date: 20110322
  Receipt Date: 20110322
  Transmission Date: 20110831
  Serious: No
  Sender: FDA-Public Use
  Company Number: None

PATIENT

DRUGS (2)
  1. TETRACAINE HYDROCHLORIDE 0.5% ALCON LABORATORIES, INC. [Suspect]
     Indication: PAIN MANAGEMENT
     Dosage: 1 DROP ONCE OPHTHALMIC
     Route: 047
     Dates: start: 20100101, end: 20110328
  2. TETRACAINE HYDROCHLORIDE 0.5% ALCON LABORATORIES, INC. [Suspect]
     Indication: CORNEAL ABRASION
     Dosage: 1 DROP ONCE OPHTHALMIC
     Route: 047
     Dates: start: 20100101, end: 20110328

REACTIONS (2)
  - MEDICATION ERROR [None]
  - PRODUCT LABEL ISSUE [None]
